FAERS Safety Report 25130677 (Version 1)
Quarter: 2025Q1

REPORT INFORMATION
  Report Type: Spontaneous
  Country: US (occurrence: US)
  Receive Date: 20250327
  Receipt Date: 20250327
  Transmission Date: 20250408
  Serious: No
  Sender: EISAI
  Company Number: US-Eisai-EC-2025-186035

PATIENT
  Age: 78 Year
  Sex: Female

DRUGS (3)
  1. LEQEMBI [Suspect]
     Active Substance: LECANEMAB-IRMB
     Indication: Cognitive disorder
     Dates: start: 20240919
  2. LEQEMBI [Suspect]
     Active Substance: LECANEMAB-IRMB
  3. LEQEMBI [Suspect]
     Active Substance: LECANEMAB-IRMB
     Dates: start: 20250123

REACTIONS (3)
  - Headache [Recovering/Resolving]
  - Nausea [Recovering/Resolving]
  - Vomiting [Recovering/Resolving]
